FAERS Safety Report 6212764-5 (Version None)
Quarter: 2009Q2

REPORT INFORMATION
  Report Type: 
  Country: None (occurrence: None)
  Receive Date: 20090603
  Receipt Date: 20090522
  Transmission Date: 20091009
  Serious: Yes (Death, Hospitalization)
  Sender: FDA-Public Use
  Company Number: HQWYE958714DEC04

PATIENT
  Sex: Male

DRUGS (3)
  1. CORDARONE [Suspect]
  2. AMIODARONE HYDROCHLORIDE [Suspect]
  3. PACERONE [Suspect]

REACTIONS (6)
  - ACUTE RESPIRATORY DISTRESS SYNDROME [None]
  - DYSPNOEA [None]
  - NASOPHARYNGITIS [None]
  - PNEUMONIA [None]
  - PULMONARY TOXICITY [None]
  - RESPIRATORY FAILURE [None]
